FAERS Safety Report 5175236-5 (Version None)
Quarter: 2006Q4

REPORT INFORMATION
  Report Type: 
  Country: None (occurrence: None)
  Receive Date: 20061214
  Receipt Date: 20061205
  Transmission Date: 20070319
  Serious: Yes (Other)
  Sender: FDA-Public Use
  Company Number: FR-ABBOTT-06P-056-0352500-00

PATIENT
  Age: 48 Year
  Sex: Female

DRUGS (3)
  1. KALETRA [Suspect]
     Indication: HIV INFECTION
     Route: 048
  2. GABAPENTIN [Concomitant]
     Indication: DRUG USE FOR UNKNOWN INDICATION
  3. ABACAVIR SULFATE LAMIVUDINE AND ZIDOVUDINE [Concomitant]
     Indication: HIV INFECTION

REACTIONS (1)
  - ATRIOVENTRICULAR BLOCK [None]
